FAERS Safety Report 20389577 (Version 1)
Quarter: 2022Q1

REPORT INFORMATION
  Report Type: Spontaneous
  Country: US (occurrence: US)
  Receive Date: 20220128
  Receipt Date: 20220128
  Transmission Date: 20220424
  Serious: Yes (Other)
  Sender: FDA-Public Use
  Company Number: US-ALLERGAN-2114529US

PATIENT
  Age: 60 Year
  Sex: Female

DRUGS (1)
  1. BOTOX [Suspect]
     Active Substance: ONABOTULINUMTOXINA
     Indication: Muscle tightness
     Dosage: UNK, SINGLE
     Dates: start: 20210311, end: 20210311

REACTIONS (5)
  - Myasthenic syndrome [Recovering/Resolving]
  - Fatigue [Recovering/Resolving]
  - Off label use [Unknown]
  - Facial paresis [Not Recovered/Not Resolved]
  - Paraesthesia [Recovering/Resolving]

NARRATIVE: CASE EVENT DATE: 20210301
